FAERS Safety Report 10580202 (Version 1)
Quarter: 2014Q4

REPORT INFORMATION
  Report Type: Spontaneous
  Country: US (occurrence: US)
  Receive Date: 20141112
  Receipt Date: 20141112
  Transmission Date: 20150529
  Serious: Yes (Hospitalization)
  Sender: FDA-Public Use
  Company Number: US-SA-2014SA154330

PATIENT
  Age: 81 Year
  Sex: Female
  Weight: 73.5 kg

DRUGS (3)
  1. LASIX [Suspect]
     Active Substance: FUROSEMIDE
     Route: 065
  2. TADALAFIL [Concomitant]
     Active Substance: TADALAFIL
  3. REMODULIN [Suspect]
     Active Substance: TREPROSTINIL
     Indication: COR PULMONALE CHRONIC
     Route: 041
     Dates: start: 20140405

REACTIONS (2)
  - Oedema peripheral [Recovering/Resolving]
  - Fluid overload [Unknown]

NARRATIVE: CASE EVENT DATE: 20140620
